FAERS Safety Report 8570506-2 (Version None)
Quarter: 2012Q3

REPORT INFORMATION
  Report Type: 
  Country: None (occurrence: None)
  Receive Date: 20120803
  Receipt Date: 20120719
  Transmission Date: 20120928
  Serious: No
  Sender: FDA-Public Use
  Company Number: US-ASTRAZENECA-2012SE51174

PATIENT
  Age: 50 Year
  Sex: Female

DRUGS (2)
  1. NEXIUM [Suspect]
     Dosage: EVERY EVENING
     Route: 048
  2. NEXIUM [Suspect]
     Dosage: EVERY MORNING
     Route: 048

REACTIONS (4)
  - DRUG DOSE OMISSION [None]
  - HIATUS HERNIA [None]
  - ASPIRATION [None]
  - VOMITING [None]
